FAERS Safety Report 15401107 (Version 1)
Quarter: 2018Q3

REPORT INFORMATION
  Report Type: Report from Study
  Country: None (occurrence: GB)
  Receive Date: 20180919
  Receipt Date: 20180919
  Transmission Date: 20181010
  Serious: Yes (Hospitalization)
  Sender: FDA-Public Use
  Company Number: GB-ABBVIE-18K-167-2487232-00

PATIENT
  Age: 65 Year
  Sex: Male
  Weight: 87 kg

DRUGS (1)
  1. HUMIRA [Suspect]
     Active Substance: ADALIMUMAB
     Indication: RHEUMATOID ARTHRITIS
     Route: 058

REACTIONS (5)
  - Malaise [Unknown]
  - Lower respiratory tract infection [Unknown]
  - Anaemia [Unknown]
  - Urinary tract infection [Unknown]
  - Post procedural fever [Unknown]

NARRATIVE: CASE EVENT DATE: 20170930
